FAERS Safety Report 6053997-0 (Version None)
Quarter: 2009Q1

REPORT INFORMATION
  Report Type: 
  Country: None (occurrence: None)
  Receive Date: 20090127
  Receipt Date: 20090120
  Transmission Date: 20090719
  Serious: Yes (Life-Threatening, Other)
  Sender: FDA-Public Use
  Company Number: AT-ASTRAZENECA-2008PK02751

PATIENT
  Age: 24361 Day
  Sex: Female

DRUGS (9)
  1. ENTOCORT EC [Suspect]
     Indication: CHOLANGITIS SCLEROSING
     Route: 048
  2. PANTOPRAZOLE SODIUM [Concomitant]
  3. FURON [Concomitant]
  4. URSO FALK [Concomitant]
  5. ROCALTROL [Concomitant]
  6. ALLOSTAD [Concomitant]
  7. THYREX [Concomitant]
  8. CA-CARBONATE [Concomitant]
  9. FOLSAN [Concomitant]

REACTIONS (2)
  - HYPERKALAEMIA [None]
  - RENAL FAILURE [None]
